FAERS Safety Report 11506997 (Version 1)
Quarter: 2015Q3

REPORT INFORMATION
  Report Type: Spontaneous
  Country: US (occurrence: None)
  Receive Date: 20150914
  Receipt Date: 20150914
  Transmission Date: 20151125
  Serious: Yes (Disabling)
  Sender: FDA-Public Use
  Company Number: None

PATIENT
  Age: 34 Year
  Sex: Male
  Weight: 79.38 kg

DRUGS (4)
  1. CIPROFLOXACIN 500MG GENERIC [Suspect]
     Active Substance: CIPROFLOXACIN
     Indication: URINARY TRACT INFECTION
     Dosage: 1 PILL TWICE DAILY TAKEN BY MOUTH
     Route: 048
     Dates: start: 20150903, end: 20150905
  2. CEPHALEXIN. [Concomitant]
     Active Substance: CEPHALEXIN
  3. CALCIUM [Concomitant]
     Active Substance: CALCIUM
  4. MAGNESIUM [Concomitant]
     Active Substance: MAGNESIUM

REACTIONS (5)
  - Tendon disorder [None]
  - Pain in extremity [None]
  - Burning sensation [None]
  - Inflammation [None]
  - Tendon pain [None]

NARRATIVE: CASE EVENT DATE: 20150905
